FAERS Safety Report 6401485-1 (Version None)
Quarter: 2009Q4

REPORT INFORMATION
  Report Type: 
  Country: None (occurrence: None)
  Receive Date: 20091015
  Receipt Date: 20091007
  Transmission Date: 20100525
  Serious: Yes (Hospitalization)
  Sender: FDA-Public Use
  Company Number: FR-BAXTER-2009BH015374

PATIENT
  Age: 52 Year
  Sex: Female

DRUGS (2)
  1. ENDOXAN BAXTER [Suspect]
     Indication: LUNG DISORDER
     Route: 040
     Dates: start: 20090624, end: 20090626
  2. ENDOXAN BAXTER [Suspect]
     Route: 040
     Dates: start: 20090523, end: 20090523

REACTIONS (3)
  - HYPONATRAEMIA [None]
  - INAPPROPRIATE ANTIDIURETIC HORMONE SECRETION [None]
  - PARTIAL SEIZURES [None]
